FAERS Safety Report 5256406-4 (Version None)
Quarter: 2007Q1

REPORT INFORMATION
  Report Type: 
  Country: None (occurrence: None)
  Receive Date: 20061204
  Receipt Date: 20061006
  Transmission Date: 20070707
  Serious: No
  Sender: FDA-Public Use
  Company Number: 2006-BP-09656BP

PATIENT
  Age: 49 Year
  Sex: Female

DRUGS (4)
  1. SPIRIVA [Suspect]
     Indication: EMPHYSEMA
     Dosage: 18 MCG (18 MCG, 1 IN 1 D), IH
     Route: 055
     Dates: start: 20060714, end: 20060828
  2. PREMARIN [Concomitant]
  3. CYTOMEL [Concomitant]
  4. SYNTHROID [Concomitant]

REACTIONS (5)
  - CONSTIPATION [None]
  - DRY MOUTH [None]
  - NAUSEA [None]
  - VISION BLURRED [None]
  - VITREOUS FLOATERS [None]
